FAERS Safety Report 13036800 (Version 5)
Quarter: 2018Q2

REPORT INFORMATION
  Report Type: Spontaneous
  Country: US (occurrence: US)
  Receive Date: 20161216
  Receipt Date: 20180615
  Transmission Date: 20180711
  Serious: Yes (Hospitalization)
  Sender: FDA-Public Use
  Company Number: US-ACTELION-A-US2016-146961

PATIENT
  Age: 28 Year
  Sex: Female
  Weight: 79.37 kg

DRUGS (21)
  1. VELETRI [Suspect]
     Active Substance: EPOPROSTENOL
     Dosage: 16 NG/KG, PER MIN
     Route: 042
     Dates: start: 20160715
  2. TAMIFLU [Concomitant]
     Active Substance: OSELTAMIVIR PHOSPHATE
     Dosage: 75 MG, BID
     Route: 048
  3. OPSUMIT [Suspect]
     Active Substance: MACITENTAN
     Dosage: 10 MG, QD
     Route: 048
  4. BREO ELLIPTA [Concomitant]
     Active Substance: FLUTICASONE FUROATE\VILANTEROL TRIFENATATE
     Dosage: 1 PUFF, QD
     Route: 045
  5. DELTASONE [Concomitant]
     Active Substance: PREDNISONE
     Dosage: 20 MG, QD
     Route: 048
  6. PHENERGAN [Concomitant]
     Active Substance: PROMETHAZINE HYDROCHLORIDE
     Dosage: 25 MG, Q6HRS PRN
     Route: 048
  7. SODIUM BICARBONATE. [Concomitant]
     Active Substance: SODIUM BICARBONATE
     Dosage: 325 MG, TID
     Route: 048
  8. WARFARIN [Concomitant]
     Active Substance: WARFARIN
  9. LASIX [Concomitant]
     Active Substance: FUROSEMIDE
     Dosage: 40 MG, BID
     Route: 048
  10. OPSUMIT [Suspect]
     Active Substance: MACITENTAN
     Indication: PULMONARY HYPERTENSION
     Dosage: 10 MG, QD
     Route: 048
     Dates: start: 20151029
  11. TESSALON [Concomitant]
     Active Substance: BENZONATATE
     Dosage: 100 MG, TID
     Route: 048
  12. OMNICEF [Concomitant]
     Active Substance: CEFDINIR
     Dosage: 300 MG, BID
     Route: 048
  13. PLAQUENIL [Concomitant]
     Active Substance: HYDROXYCHLOROQUINE SULFATE
     Dosage: 400 MG, QD
     Route: 048
  14. GABAPENTIN. [Concomitant]
     Active Substance: GABAPENTIN
  15. VELETRI [Suspect]
     Active Substance: EPOPROSTENOL
     Indication: PULMONARY HYPERTENSION
     Dosage: 20 NG/KG, PER MIN
     Route: 042
  16. KLOR-CON [Concomitant]
     Active Substance: POTASSIUM CHLORIDE
     Dosage: 10 UNK, QD
     Route: 048
  17. TYLENOL [Concomitant]
     Active Substance: ACETAMINOPHEN
     Dosage: 500 MG, Q6HRS PRN
     Route: 048
  18. ADCIRCA [Concomitant]
     Active Substance: TADALAFIL
     Dosage: 20 MG, BID
     Route: 048
  19. SPIRONOLACTONE. [Concomitant]
     Active Substance: SPIRONOLACTONE
     Dosage: 50 MG, QD
     Route: 048
  20. FOLIC ACID. [Concomitant]
     Active Substance: FOLIC ACID
     Route: 048
  21. LANOXIN [Concomitant]
     Active Substance: DIGOXIN
     Dosage: 125 MG, QD
     Route: 048

REACTIONS (30)
  - Purulent discharge [Recovered/Resolved]
  - Dyspnoea [Unknown]
  - Memory impairment [Unknown]
  - Vomiting [Not Recovered/Not Resolved]
  - Peripheral swelling [Unknown]
  - Acute kidney injury [Unknown]
  - Right ventricular failure [Unknown]
  - Anaemia of chronic disease [Unknown]
  - Pain [Not Recovered/Not Resolved]
  - Nausea [Not Recovered/Not Resolved]
  - Blood culture positive [Recovered/Resolved]
  - Systemic lupus erythematosus [Unknown]
  - Pulmonary mass [Unknown]
  - Headache [Unknown]
  - Influenza [Unknown]
  - Heart sounds abnormal [Unknown]
  - Cough [Unknown]
  - Thrombocytopenia [Unknown]
  - Venous pressure jugular increased [Unknown]
  - Drug dose omission [Unknown]
  - Device related infection [Unknown]
  - Clostridium difficile colitis [Unknown]
  - Insurance issue [Unknown]
  - Pyrexia [Not Recovered/Not Resolved]
  - Device related sepsis [Recovered/Resolved]
  - Raynaud^s phenomenon [Unknown]
  - Cardiac murmur [Unknown]
  - Catheter site infection [Recovered/Resolved]
  - Mycobacterium avium complex infection [Unknown]
  - Liver function test increased [Unknown]
